FAERS Safety Report 5831171-8 (Version None)
Quarter: 2008Q3

REPORT INFORMATION
  Report Type: 
  Country: None (occurrence: None)
  Receive Date: 20080801
  Receipt Date: 20080509
  Transmission Date: 20090109
  Serious: No
  Sender: FDA-Public Use
  Company Number: US-BRISTOL-MYERS SQUIBB COMPANY-14185110

PATIENT
  Age: 89 Year
  Sex: Male
  Weight: 82 kg

DRUGS (10)
  1. COUMADIN [Suspect]
     Indication: ARRHYTHMIA
     Dosage: DOSE REDUCED TO 2.5 MG QD.
     Dates: start: 20080502
  2. SYNTHROID [Concomitant]
  3. TOPROL-XL [Concomitant]
  4. NORVASC [Concomitant]
  5. ASPIRIN [Concomitant]
  6. LASIX [Concomitant]
  7. TERAZOSIN HCL [Concomitant]
  8. FLOMAX [Concomitant]
  9. GABAPENTIN [Concomitant]
  10. CALCIUM [Concomitant]

REACTIONS (5)
  - ASTHENIA [None]
  - FEELING HOT [None]
  - INTERNATIONAL NORMALISED RATIO ABNORMAL [None]
  - MUSCULOSKELETAL STIFFNESS [None]
  - PRURITUS [None]
